FAERS Safety Report 14981090 (Version 1)
Quarter: 2018Q3

REPORT INFORMATION
  Report Type: Spontaneous
  Country: US (occurrence: US)
  Receive Date: 20180606
  Receipt Date: 20180606
  Transmission Date: 20181010
  Serious: No
  Sender: FDA-Public Use
  Company Number: US-PTC THERAPEUTICS, INC.-US-2018PTC000184

PATIENT

DRUGS (2)
  1. ATALUREN (PTC124) [Suspect]
     Active Substance: ATALUREN
     Indication: PRODUCT USED FOR UNKNOWN INDICATION
  2. EMFLAZA [Suspect]
     Active Substance: DEFLAZACORT
     Indication: DUCHENNE MUSCULAR DYSTROPHY
     Dosage: 18 MG, QD
     Route: 048
     Dates: start: 20170906

REACTIONS (3)
  - Insomnia [Unknown]
  - Middle insomnia [None]
  - Therapy cessation [None]

NARRATIVE: CASE EVENT DATE: 201802
